FAERS Safety Report 4692313-3 (Version None)
Quarter: 2005Q2

REPORT INFORMATION
  Report Type: 
  Country: None (occurrence: None)
  Receive Date: 20050614
  Receipt Date: 20050601
  Transmission Date: 20051028
  Serious: Yes (Life-Threatening)
  Sender: FDA-Public Use
  Company Number: 2005-05-0837

PATIENT
  Age: 64 Year
  Sex: Male
  Weight: 70 kg

DRUGS (1)
  1. CLARITIN [Suspect]
     Indication: CONJUNCTIVITIS ALLERGIC
     Dosage: 10 MG ORAL
     Route: 048
     Dates: start: 20050201, end: 20050424

REACTIONS (5)
  - ANXIETY [None]
  - CONDITION AGGRAVATED [None]
  - PALPITATIONS [None]
  - STRESS [None]
  - VENTRICULAR EXTRASYSTOLES [None]
